FAERS Safety Report 8555481-9 (Version None)
Quarter: 2012Q3

REPORT INFORMATION
  Report Type: 
  Country: None (occurrence: None)
  Receive Date: 20120731
  Receipt Date: 20111123
  Transmission Date: 20120928
  Serious: No
  Sender: FDA-Public Use
  Company Number: US-ASTRAZENECA-2011SE13039

PATIENT
  Age: 48 Year
  Sex: Female
  Weight: 78.5 kg

DRUGS (7)
  1. SEROQUEL [Suspect]
     Route: 048
  2. XANAX [Concomitant]
     Indication: PANIC ATTACK
  3. SEROQUEL [Suspect]
     Route: 048
  4. SEROQUEL [Suspect]
     Indication: DEPRESSION
     Route: 048
     Dates: start: 20080101, end: 20101201
  5. SEROQUEL [Suspect]
     Route: 048
     Dates: start: 20101201, end: 20110301
  6. PRISTIQ [Concomitant]
     Indication: DEPRESSION
     Route: 048
  7. VYCODAN [Concomitant]

REACTIONS (10)
  - DRUG DOSE OMISSION [None]
  - DRUG INEFFECTIVE [None]
  - INSOMNIA [None]
  - THERAPEUTIC RESPONSE UNEXPECTED [None]
  - CRYING [None]
  - HEADACHE [None]
  - WEIGHT INCREASED [None]
  - MIGRAINE [None]
  - DEPRESSION [None]
  - FEELING JITTERY [None]
